FAERS Safety Report 24894995 (Version 1)
Quarter: 2025Q1

REPORT INFORMATION
  Report Type: Other
  Country: CA (occurrence: CA)
  Receive Date: 20250128
  Receipt Date: 20250128
  Transmission Date: 20250408
  Serious: Yes (Hospitalization)
  Sender: B BRAUN
  Company Number: CA-B.Braun Medical Inc.-2169941

PATIENT
  Age: 16 Month
  Sex: Female

DRUGS (29)
  1. ACETAMINOPHEN [Suspect]
     Active Substance: ACETAMINOPHEN
     Indication: Pyrexia
  2. AMLODIPINE [Suspect]
     Active Substance: AMLODIPINE BESYLATE
  3. UNSPECIFIED INGREDIENT [Concomitant]
     Active Substance: UNSPECIFIED INGREDIENT
  4. MEROPENEM [Concomitant]
     Active Substance: MEROPENEM
  5. OMALIZUMAB [Concomitant]
     Active Substance: OMALIZUMAB
  6. MUPIROCIN [Concomitant]
     Active Substance: MUPIROCIN
  7. CLOBETASOL [Concomitant]
     Active Substance: CLOBETASOL
  8. BETADERM [Concomitant]
     Active Substance: BETAMETHASONE VALERATE
  9. RITUXIMAB [Concomitant]
     Active Substance: RITUXIMAB
  10. PROTOPIC [Concomitant]
     Active Substance: TACROLIMUS
  11. Oral doxepin [Concomitant]
  12. Oral hydroxyzine [Concomitant]
  13. RUPATADINE [Concomitant]
     Active Substance: RUPATADINE
  14. HUMAN IMMUNOGLOBULIN G [Concomitant]
     Active Substance: HUMAN IMMUNOGLOBULIN G
  15. DAPSONE [Concomitant]
     Active Substance: DAPSONE
  16. METHYLPREDNISOLONE [Concomitant]
     Active Substance: METHYLPREDNISOLONE
  17. METHYLENE BLUE [Concomitant]
     Active Substance: METHYLENE BLUE
  18. ENALAPRIL [Concomitant]
     Active Substance: ENALAPRIL
  19. CEFAZOLIN [Concomitant]
     Active Substance: CEFAZOLIN
  20. ANTIHISTAMINES NOS [Concomitant]
     Active Substance: ANTIHISTAMINES NOS
  21. VANCOMYCIN [Concomitant]
     Active Substance: VANCOMYCIN
  22. PIPERACILLIN AND TAZOBACTAM [Concomitant]
     Active Substance: PIPERACILLIN SODIUM\TAZOBACTAM SODIUM
  23. PREDNISONE [Concomitant]
     Active Substance: PREDNISONE
  24. SIROLIMUS [Concomitant]
     Active Substance: SIROLIMUS
  25. TACROLIMUS [Concomitant]
     Active Substance: TACROLIMUS
  26. MYCOPHENOLATE MOFETIL [Concomitant]
     Active Substance: MYCOPHENOLATE MOFETIL
  27. AMOXICILLIN [Concomitant]
     Active Substance: AMOXICILLIN
  28. SULFAMETHOXAZOLE\TRIMETHOPRIM [Concomitant]
     Active Substance: SULFAMETHOXAZOLE\TRIMETHOPRIM
  29. ASPIRIN [Suspect]
     Active Substance: ASPIRIN

REACTIONS (3)
  - Linear IgA disease [Recovered/Resolved with Sequelae]
  - Drug interaction [Recovered/Resolved with Sequelae]
  - Off label use [Recovered/Resolved with Sequelae]
